FAERS Safety Report 9831413 (Version 1)
Quarter: 2014Q1

REPORT INFORMATION
  Report Type: Spontaneous
  Country: US (occurrence: US)
  Receive Date: 20140121
  Receipt Date: 20140121
  Transmission Date: 20141002
  Serious: Yes (Hospitalization)
  Sender: FDA-Public Use
  Company Number: US-BRISTOL-MYERS SQUIBB COMPANY-20012191

PATIENT
  Age: 84 Year
  Sex: Male

DRUGS (3)
  1. ELIQUIS [Suspect]
     Dosage: 1 DF= 1 DOSE
     Route: 048
  2. ASPIRIN [Suspect]
  3. PLAVIX [Suspect]

REACTIONS (3)
  - Compartment syndrome [Unknown]
  - Atrial fibrillation [Unknown]
  - Haemorrhage [Unknown]
